FAERS Safety Report 8276676-8 (Version None)
Quarter: 2012Q2

REPORT INFORMATION
  Report Type: 
  Country: None (occurrence: None)
  Receive Date: 20120412
  Receipt Date: 20120412
  Transmission Date: 20120825
  Serious: Yes (Death, Life-Threatening, Hospitalization, Disabling, Congenital Anomaly, Other)
  Sender: FDA-Public Use
  Company Number: None

PATIENT
  Age: 34 Year
  Sex: Female
  Weight: 62.595 kg

DRUGS (1)
  1. ROGAINE [Suspect]
     Dosage: SMALL BIT
     Route: 061

REACTIONS (4)
  - PALPITATIONS [None]
  - INSOMNIA [None]
  - ANXIETY [None]
  - LIBIDO DECREASED [None]
